FAERS Safety Report 9633151 (Version 2)
Quarter: 2013Q4

REPORT INFORMATION
  Report Type: Spontaneous
  Country: DK (occurrence: DK)
  Receive Date: 20131020
  Receipt Date: 20131031
  Transmission Date: 20140711
  Serious: Yes (Other)
  Sender: FDA-Public Use
  Company Number: DK-JNJFOC-20131005002

PATIENT
  Age: 57 Year
  Sex: Female

DRUGS (1)
  1. NICORETTE FRUITMINT GUM 2MG [Suspect]
     Indication: SMOKING CESSATION THERAPY
     Dosage: 15 TO 20 MG DAILY
     Route: 048
     Dates: start: 19930303

REACTIONS (9)
  - Coma [Unknown]
  - Product coating issue [Unknown]
  - Drug withdrawal syndrome [Unknown]
  - Hallucination [Unknown]
  - Irritability [Unknown]
  - General physical health deterioration [Unknown]
  - Nicotine dependence [Not Recovered/Not Resolved]
  - Malaise [Unknown]
  - Product quality issue [Unknown]
